FAERS Safety Report 17699462 (Version 2)
Quarter: 2020Q2

REPORT INFORMATION
  Report Type: Report from Study
  Country: US (occurrence: US)
  Receive Date: 20200423
  Receipt Date: 20200611
  Transmission Date: 20200714
  Serious: Yes (Other)
  Sender: FDA-Public Use
  Company Number: NVSC2020US108231

PATIENT
  Age: 31 Year
  Sex: Male

DRUGS (1)
  1. GILENYA [Suspect]
     Active Substance: FINGOLIMOD HYDROCHLORIDE
     Indication: MULTIPLE SCLEROSIS
     Dosage: 0.5 MG, (EVERY OTHER DAY)
     Route: 048
     Dates: start: 2019

REACTIONS (8)
  - Productive cough [Unknown]
  - Cough [Unknown]
  - Somnolence [Recovered/Resolved]
  - Muscular weakness [Recovered/Resolved]
  - Hepatic enzyme increased [Unknown]
  - Paraesthesia [Recovered/Resolved]
  - Prescribed underdose [Unknown]
  - Central nervous system lesion [Unknown]

NARRATIVE: CASE EVENT DATE: 202001
